FAERS Safety Report 17791837 (Version 2)
Quarter: 2020Q2

REPORT INFORMATION
  Report Type: Spontaneous
  Country: AT (occurrence: AT)
  Receive Date: 20200515
  Receipt Date: 20200623
  Transmission Date: 20200714
  Serious: Yes (Disabling, Other)
  Sender: FDA-Public Use
  Company Number: AT-BRISTOL-MYERS SQUIBB COMPANY-BMS-2020-037786

PATIENT
  Age: 68 Year
  Sex: Male
  Weight: 83 kg

DRUGS (3)
  1. ELIQUIS [Suspect]
     Active Substance: APIXABAN
     Indication: EMBOLISM VENOUS
     Dosage: 10 MILLIGRAM, QD (1-0-1)
     Route: 065
     Dates: start: 20191215
  2. PLAVIX A [Suspect]
     Active Substance: ASPIRIN\CLOPIDOGREL BISULFATE
     Indication: PRODUCT USED FOR UNKNOWN INDICATION
     Dosage: 75 MILLIGRAM, QD (1-0-0)
     Route: 065
     Dates: start: 20191215
  3. THROMBO ASS [Suspect]
     Active Substance: ASPIRIN
     Indication: CORONARY ARTERIAL STENT INSERTION
     Dosage: 100 MILLIGRAM, QD
     Route: 048
     Dates: start: 20191215

REACTIONS (3)
  - Thalamic infarction [Not Recovered/Not Resolved]
  - Treatment noncompliance [Recovered/Resolved]
  - Ischaemic cerebral infarction [Not Recovered/Not Resolved]

NARRATIVE: CASE EVENT DATE: 20200430
